APPROVED DRUG PRODUCT: KETOROLAC TROMETHAMINE
Active Ingredient: KETOROLAC TROMETHAMINE
Strength: 30MG/ML
Dosage Form/Route: INJECTABLE;INJECTION
Application: A212939 | Product #002
Applicant: EUGIA PHARMA SPECIALITIES LTD
Approved: Oct 20, 2020 | RLD: No | RS: No | Type: DISCN